FAERS Safety Report 7686142-6 (Version None)
Quarter: 2011Q3

REPORT INFORMATION
  Report Type: 
  Country: None (occurrence: None)
  Receive Date: 20110816
  Receipt Date: 20110815
  Transmission Date: 20111222
  Serious: No
  Sender: FDA-Public Use
  Company Number: US-PFIZER INC-2011187283

PATIENT
  Sex: Male
  Weight: 95.238 kg

DRUGS (5)
  1. LEXAPRO [Concomitant]
     Indication: ANTIDEPRESSANT THERAPY
     Dosage: 20 MG, 1X/DAY AT NIGHT
     Route: 048
     Dates: start: 20010101
  2. LAMICTAL [Concomitant]
     Indication: BIPOLAR DISORDER
     Dosage: 200 MG, 1X/DAY AT NIGHT
     Route: 048
     Dates: start: 20010101
  3. TRAZODONE [Concomitant]
     Indication: DEPRESSION
     Dosage: 200 MG,DAILY AT NIGHT
     Route: 048
     Dates: start: 20010101
  4. CHANTIX [Suspect]
     Indication: SMOKING CESSATION THERAPY
     Dosage: 0.5 MG, UNK
     Route: 048
     Dates: start: 20060701, end: 20060101
  5. LEXAPRO [Concomitant]
     Indication: ANXIETY

REACTIONS (1)
  - ABNORMAL DREAMS [None]
